FAERS Safety Report 14958214 (Version 1)
Quarter: 2018Q2

REPORT INFORMATION
  Report Type: Spontaneous
  Country: US (occurrence: US)
  Receive Date: 20180531
  Receipt Date: 20180531
  Transmission Date: 20180711
  Serious: No
  Sender: FDA-Public Use
  Company Number: US-LEXICON PHARMACEUTICALS, INC-18-1606-00639

PATIENT
  Sex: Female

DRUGS (17)
  1. LOMOTIL [Concomitant]
     Active Substance: ATROPINE SULFATE\DIPHENOXYLATE HYDROCHLORIDE
  2. LOPRESSOR [Concomitant]
     Active Substance: METOPROLOL TARTRATE
  3. TELOTRISTAT ETHYL [Suspect]
     Active Substance: TELOTRISTAT ETHYL
     Indication: CARCINOID SYNDROME
     Route: 048
     Dates: start: 20180312
  4. BENICAR [Concomitant]
     Active Substance: OLMESARTAN MEDOXOMIL
  5. VITAMIN D [Concomitant]
     Active Substance: CHOLECALCIFEROL
  6. OMEGA 3 [Concomitant]
     Active Substance: OMEGA-3 FATTY ACIDS
  7. PREDNISONE. [Concomitant]
     Active Substance: PREDNISONE
  8. CENTRUM [Concomitant]
     Active Substance: VITAMINS
  9. CREON [Concomitant]
     Active Substance: PANCRELIPASE AMYLASE\PANCRELIPASE LIPASE\PANCRELIPASE PROTEASE
  10. IMODIUM A-D [Concomitant]
     Active Substance: LOPERAMIDE HYDROCHLORIDE
  11. PAREGORIC [Concomitant]
     Active Substance: MORPHINE
  12. SERTRALINE [Concomitant]
     Active Substance: SERTRALINE HYDROCHLORIDE
  13. COENZYME Q10 [Concomitant]
     Active Substance: UBIDECARENONE
  14. SANDOSTATIN [Concomitant]
     Active Substance: OCTREOTIDE ACETATE
  15. TYLENOL [Concomitant]
     Active Substance: ACETAMINOPHEN
  16. FUROSEMIDE. [Concomitant]
     Active Substance: FUROSEMIDE
  17. WELCHOL [Concomitant]
     Active Substance: COLESEVELAM HYDROCHLORIDE

REACTIONS (2)
  - Frequent bowel movements [Unknown]
  - Weight decreased [Unknown]

NARRATIVE: CASE EVENT DATE: 2018
